FAERS Safety Report 19790238 (Version 4)
Quarter: 2022Q1

REPORT INFORMATION
  Report Type: Report from Study
  Country: US (occurrence: US)
  Receive Date: 20210906
  Receipt Date: 20220316
  Transmission Date: 20220423
  Serious: Yes (Other)
  Sender: FDA-Public Use
  Company Number: NVSC2021US200915

PATIENT
  Age: 50 Year
  Sex: Female

DRUGS (3)
  1. GILENYA [Suspect]
     Active Substance: FINGOLIMOD HYDROCHLORIDE
     Indication: Multiple sclerosis
     Dosage: 0.5 MG, QD
     Route: 048
  2. GILENYA [Suspect]
     Active Substance: FINGOLIMOD HYDROCHLORIDE
     Dosage: 0.5 MG, QD
     Route: 048
  3. GILENYA [Suspect]
     Active Substance: FINGOLIMOD HYDROCHLORIDE
     Dosage: 0.5 MG
     Route: 048
     Dates: start: 20201028, end: 20211101

REACTIONS (8)
  - Multiple sclerosis relapse [Recovered/Resolved]
  - Fatigue [Unknown]
  - Asthenia [Unknown]
  - Fall [Unknown]
  - White blood cell count decreased [Recovering/Resolving]
  - Ataxia [Unknown]
  - Dysphagia [Unknown]
  - Urine abnormality [Unknown]

NARRATIVE: CASE EVENT DATE: 20220204
